FAERS Safety Report 23757474 (Version 1)
Quarter: 2024Q2

REPORT INFORMATION
  Report Type: Spontaneous
  Country: US (occurrence: None)
  Receive Date: 20240417
  Receipt Date: 20240417
  Transmission Date: 20240717
  Serious: Yes (Life-Threatening)
  Sender: FDA-Public Use
  Company Number: None

PATIENT
  Age: 55 Year
  Sex: Male
  Weight: 65.3 kg

DRUGS (1)
  1. PERFLUTREN [Suspect]
     Active Substance: PERFLUTREN
     Route: 042
     Dates: start: 20240417

REACTIONS (5)
  - Cyanosis [None]
  - Drooling [None]
  - Unresponsive to stimuli [None]
  - Pulse absent [None]
  - Contrast media reaction [None]

NARRATIVE: CASE EVENT DATE: 20240417
